FAERS Safety Report 4319892-X (Version None)
Quarter: 2004Q1

REPORT INFORMATION
  Report Type: 
  Country: None (occurrence: None)
  Receive Date: 20040316
  Receipt Date: 20040309
  Transmission Date: 20041129
  Serious: Yes (Hospitalization)
  Sender: FDA-Public Use
  Company Number: 2004202953US

PATIENT
  Age: 23 Year
  Sex: Male

DRUGS (1)
  1. CELEBREX [Suspect]
     Dosage: ORAL
     Route: 048

REACTIONS (1)
  - HEART RATE DECREASED [None]
